FAERS Safety Report 4299064-8 (Version None)
Quarter: 2004Q1

REPORT INFORMATION
  Report Type: 
  Country: None (occurrence: None)
  Receive Date: 20040217
  Receipt Date: 20040202
  Transmission Date: 20041129
  Serious: Yes (Hospitalization)
  Sender: FDA-Public Use
  Company Number: SP00128

PATIENT
  Sex: Female

DRUGS (1)
  1. COLAZAL [Suspect]

REACTIONS (2)
  - RENAL DISORDER [None]
  - VASCULITIS NECROTISING [None]
